FAERS Safety Report 4421292-9 (Version None)
Quarter: 2004Q3

REPORT INFORMATION
  Report Type: 
  Country: None (occurrence: None)
  Receive Date: 20040707
  Receipt Date: 20040317
  Transmission Date: 20050211
  Serious: No
  Sender: FDA-Public Use
  Company Number: A03200400834

PATIENT
  Sex: Male

DRUGS (1)
  1. ARIXTRA [Suspect]

REACTIONS (1)
  - HYPERTENSION [None]
